FAERS Safety Report 6689294-X (Version None)
Quarter: 2010Q2

REPORT INFORMATION
  Report Type: 
  Country: None (occurrence: None)
  Receive Date: 20100420
  Receipt Date: 20100406
  Transmission Date: 20101027
  Serious: Yes (Other)
  Sender: FDA-Public Use
  Company Number: DE-ELI_LILLY_AND_COMPANY-DE200912005217

PATIENT
  Age: 53 Year
  Sex: Male

DRUGS (4)
  1. ZYPADHERA [Suspect]
     Indication: SCHIZOPHRENIA, PARANOID TYPE
     Dosage: 210 MG, OTHER
     Route: 030
     Dates: start: 20090907
  2. ZYPADHERA [Suspect]
     Dosage: 300 MG, EVERY 21 DAYS.
     Route: 030
     Dates: start: 20090918, end: 20091029
  3. ZYPADHERA [Suspect]
     Dosage: 450 MG, OTHER
     Route: 030
     Dates: start: 20091111, end: 20091223
  4. ZYPADHERA [Suspect]
     Dosage: 300 MG, EVERY 14 DAYS
     Route: 030
     Dates: start: 20100112

REACTIONS (21)
  - BRONCHITIS [None]
  - C-REACTIVE PROTEIN INCREASED [None]
  - CONFUSIONAL STATE [None]
  - DELIRIUM [None]
  - DEPRESSED LEVEL OF CONSCIOUSNESS [None]
  - DISTURBANCE IN ATTENTION [None]
  - DYSARTHRIA [None]
  - DYSPHAGIA [None]
  - HALLUCINATION, VISUAL [None]
  - HYPERHIDROSIS [None]
  - INFECTION [None]
  - LIP SWELLING [None]
  - MALAISE [None]
  - PALATAL DISORDER [None]
  - PHARYNGEAL DISORDER [None]
  - PYREXIA [None]
  - RESTLESSNESS [None]
  - RHONCHI [None]
  - TACHYCARDIA [None]
  - TONGUE DISORDER [None]
  - URINARY INCONTINENCE [None]
